FAERS Safety Report 14704498 (Version 2)
Quarter: 2018Q2

REPORT INFORMATION
  Report Type: Spontaneous
  Country: JP (occurrence: JP)
  Receive Date: 20180402
  Receipt Date: 20180622
  Transmission Date: 20180711
  Serious: Yes (Death, Other)
  Sender: FDA-Public Use
  Company Number: JP-009507513-1704JPN002594J

PATIENT
  Age: 68 Year
  Sex: Male
  Weight: 40 kg

DRUGS (3)
  1. ISOBIDE [Concomitant]
     Active Substance: ISOSORBIDE
     Dosage: UNK
     Route: 048
  2. EXCEGRAN [Concomitant]
     Active Substance: ZONISAMIDE
     Indication: LUNG ADENOCARCINOMA STAGE II
     Dosage: 100 MG, BID
     Route: 048
  3. KEYTRUDA [Suspect]
     Active Substance: PEMBROLIZUMAB
     Indication: LUNG ADENOCARCINOMA STAGE II
     Dosage: 200 MG, Q3W
     Route: 041
     Dates: start: 20170425, end: 20170425

REACTIONS (3)
  - Hypopituitarism [Recovered/Resolved]
  - Pyrexia [Recovered/Resolved]
  - Malignant neoplasm progression [Fatal]

NARRATIVE: CASE EVENT DATE: 20170425
